FAERS Safety Report 25314333 (Version 2)
Quarter: 2025Q2

REPORT INFORMATION
  Report Type: Report from Study
  Country: CA (occurrence: CA)
  Receive Date: 20250514
  Receipt Date: 20250519
  Transmission Date: 20250717
  Serious: Yes (Other)
  Sender: TAKEDA
  Company Number: CA-TAKEDA-2025TUS045425

PATIENT
  Sex: Male

DRUGS (9)
  1. VEDOLIZUMAB [Suspect]
     Active Substance: VEDOLIZUMAB
     Indication: Colitis ulcerative
     Dates: start: 20240313, end: 20250326
  2. PANTOPRAZOLE SODIUM [Suspect]
     Active Substance: PANTOPRAZOLE SODIUM
     Indication: Product used for unknown indication
     Dosage: 40 MILLIGRAM, QD
  3. Salofalk [Concomitant]
  4. MESALAMINE [Concomitant]
     Active Substance: MESALAMINE
  5. MESALAMINE [Concomitant]
     Active Substance: MESALAMINE
     Dosage: 1.2 GRAM, QD
  6. PERINDOPRIL [Concomitant]
     Active Substance: PERINDOPRIL
     Dosage: 4MG/1.25MG, QD
  7. EZETIMIBE [Concomitant]
     Active Substance: EZETIMIBE
     Dosage: 10 MILLIGRAM, QD
  8. VITAMIN C [Concomitant]
     Active Substance: ASCORBIC ACID
     Dosage: UNK, QD
  9. VITAMIN D [Concomitant]
     Active Substance: VITAMIN D NOS
     Dosage: 1000 INTERNATIONAL UNIT, QD

REACTIONS (1)
  - Crohn^s disease [Unknown]
